FAERS Safety Report 6887067-6 (Version None)
Quarter: 2010Q3

REPORT INFORMATION
  Report Type: 
  Country: None (occurrence: None)
  Receive Date: 20100708
  Receipt Date: 20100223
  Transmission Date: 20110219
  Serious: Yes (Other)
  Sender: FDA-Public Use
  Company Number: 2010024730

PATIENT
  Age: 52 Year
  Sex: Female
  Weight: 61.2 kg

DRUGS (5)
  1. CHANTIX [Suspect]
     Indication: SMOKING CESSATION THERAPY
     Dosage: 0.5 MG, 1X/DAY; 0.5 MG, 2X/DAY
     Dates: start: 20100217, end: 20100219
  2. CHANTIX [Suspect]
     Indication: SMOKING CESSATION THERAPY
     Dosage: 0.5 MG, 1X/DAY; 0.5 MG, 2X/DAY
     Dates: start: 20100221, end: 20100224
  3. AZELASTINE (AZELASTINE) [Concomitant]
  4. CYMBALTA [Concomitant]
  5. NORTRIPTYLINE HCL [Concomitant]

REACTIONS (7)
  - AGITATION [None]
  - ANXIETY [None]
  - CRYING [None]
  - DEPRESSION [None]
  - EMOTIONAL DISORDER [None]
  - MOOD SWINGS [None]
  - PERSONALITY CHANGE [None]
